FAERS Safety Report 8034370-2 (Version None)
Quarter: 2012Q1

REPORT INFORMATION
  Report Type: 
  Country: None (occurrence: None)
  Receive Date: 20120110
  Receipt Date: 20120105
  Transmission Date: 20120608
  Serious: Yes (Hospitalization, Other)
  Sender: FDA-Public Use
  Company Number: PHHY2012CA001029

PATIENT
  Age: 83 Year
  Sex: Male

DRUGS (9)
  1. CLARITHROMYCIN [Suspect]
     Indication: PNEUMONIA
     Dosage: 500 MG, BID
     Route: 048
  2. SPIRONOLACTONE [Concomitant]
     Indication: CARDIAC DISORDER
     Dosage: 25 MG, QD
     Route: 048
  3. FUROSEMIDE [Concomitant]
     Indication: CARDIAC DISORDER
     Dosage: 60 MG, QD
     Route: 048
  4. DIGOXIN [Interacting]
     Indication: CARDIAC DISORDER
     Dosage: 0.125 MG, QD
     Route: 048
  5. BISOPROLOL FUMARATE [Concomitant]
     Indication: CARDIAC DISORDER
     Dosage: 2.5 MG, QD
     Route: 048
  6. CAPTOPRIL [Concomitant]
     Indication: CARDIAC DISORDER
     Dosage: 25 MG, BID
     Route: 048
  7. ISOSORBIDE MONONITRATE [Concomitant]
     Indication: CARDIAC DISORDER
     Dosage: 30 MG, QD
     Route: 048
  8. POTASSIUM CHLORIDE [Concomitant]
     Indication: CARDIAC DISORDER
     Dosage: 20 MMOL/L, QD
     Route: 048
  9. PRAVASTATIN [Concomitant]
     Indication: CARDIAC DISORDER
     Dosage: 40 MG, QD
     Route: 048

REACTIONS (11)
  - RENAL IMPAIRMENT [None]
  - VENTRICULAR EXTRASYSTOLES [None]
  - DRUG INTERACTION [None]
  - COUGH [None]
  - TOXICITY TO VARIOUS AGENTS [None]
  - FATIGUE [None]
  - NAUSEA [None]
  - DECREASED APPETITE [None]
  - MALAISE [None]
  - DYSPNOEA [None]
  - DIZZINESS [None]
